FAERS Safety Report 8232869-7 (Version None)
Quarter: 2012Q1

REPORT INFORMATION
  Report Type: 
  Country: None (occurrence: None)
  Receive Date: 20120324
  Receipt Date: 20120315
  Transmission Date: 20120608
  Serious: Yes (Other)
  Sender: FDA-Public Use
  Company Number: US-AMGEN-USASP2012017209

PATIENT
  Sex: Male

DRUGS (1)
  1. ENBREL [Suspect]
     Dosage: 50 MG, QWK
     Route: 064
     Dates: start: 20080101, end: 20110501

REACTIONS (3)
  - FEEDING DISORDER NEONATAL [None]
  - PREMATURE BABY [None]
  - BODY TEMPERATURE FLUCTUATION [None]
